FAERS Safety Report 9698035 (Version 1)
Quarter: 2013Q4

REPORT INFORMATION
  Report Type: Spontaneous
  Country: AU (occurrence: AU)
  Receive Date: 20131120
  Receipt Date: 20131120
  Transmission Date: 20140711
  Serious: Yes (Other)
  Sender: FDA-Public Use
  Company Number: PHHY2013AU129954

PATIENT
  Age: 57 Year
  Sex: Male

DRUGS (4)
  1. 5-FLUOROURACIL [Suspect]
     Indication: COLORECTAL CANCER STAGE III
     Dosage: 780 MG ON DAY 1
     Route: 040
  2. 5-FLUOROURACIL [Suspect]
     Dosage: 1170 MG, UNK
  3. OXALIPLATIN [Concomitant]
     Indication: COLORECTAL CANCER STAGE III
     Dosage: 165 MG ON DAY 1
  4. LEUCOVORIN [Concomitant]
     Indication: COLORECTAL CANCER STAGE III
     Dosage: 390 MG ON DAY 1 AND 2

REACTIONS (3)
  - Optic neuropathy [Recovered/Resolved]
  - Visual field defect [Recovered/Resolved]
  - Papilloedema [Recovered/Resolved]
